FAERS Safety Report 15150946 (Version 10)
Quarter: 2020Q3

REPORT INFORMATION
  Report Type: Spontaneous
  Country: IT (occurrence: IT)
  Receive Date: 20180716
  Receipt Date: 20200717
  Transmission Date: 20201102
  Serious: Yes (Death, Life-Threatening, Hospitalization, Other)
  Sender: FDA-Public Use
  Company Number: PHHY2018IT045963

PATIENT
  Age: 61 Year
  Sex: Male

DRUGS (16)
  1. EVEROLIMUS. [Suspect]
     Active Substance: EVEROLIMUS
     Indication: IMMUNOSUPPRESSANT DRUG THERAPY
     Dosage: 3 MG, QD (STARTED FROM POST?OPERATIVE DAY 7 AND STOPPED ON POST OPERATIVE DAY 9)
     Route: 065
     Dates: start: 201611, end: 2016
  2. ETANERCEPT [Suspect]
     Active Substance: ETANERCEPT
     Indication: ADJUVANT THERAPY
  3. METHYLPREDNISOLONE. [Suspect]
     Active Substance: METHYLPREDNISOLONE
     Indication: IMMUNOSUPPRESSANT DRUG THERAPY
     Dosage: 20 MG, QD (STARTED FROM POST OPERATIVE DAY 1)
     Route: 065
     Dates: start: 201611, end: 2016
  4. TACROLIMUS. [Suspect]
     Active Substance: TACROLIMUS
     Dosage: 0.08 MG/KG, QD (0.075 MG/KG DAILY; STARTED FROM POD3; FROM POD9 DISCONTINUOUSLY)
     Route: 065
  5. EVEROLIMUS. [Suspect]
     Active Substance: EVEROLIMUS
     Dosage: STARTED FROM POST?OPERATIVE DAY 7 AND STOPPED ON POST OPERATIVE DAY 9
     Route: 065
  6. TACROLIMUS. [Suspect]
     Active Substance: TACROLIMUS
     Dosage: 0.04 MG/KG FROM POST?OPERATIVE DAY 19
     Route: 065
     Dates: start: 2016
  7. CASPOFUNGIN [Suspect]
     Active Substance: CASPOFUNGIN
     Indication: ANTIFUNGAL PROPHYLAXIS
     Dosage: UNK
     Route: 065
  8. DAPTOMYCIN. [Suspect]
     Active Substance: DAPTOMYCIN
     Indication: PROPHYLAXIS
  9. ETANERCEPT [Suspect]
     Active Substance: ETANERCEPT
     Indication: IMMUNOSUPPRESSANT DRUG THERAPY
  10. METHYLPREDNISOLONE. [Suspect]
     Active Substance: METHYLPREDNISOLONE
     Dosage: 40 MG, QD (FROM POST?OPERATIVE DAY 19)
     Route: 065
     Dates: start: 2016
  11. MEROPENEM. [Suspect]
     Active Substance: MEROPENEM
     Indication: ANTIBIOTIC PROPHYLAXIS
     Dosage: UNK
     Route: 066
  12. DAPTOMYCIN. [Suspect]
     Active Substance: DAPTOMYCIN
     Indication: ANTIBIOTIC PROPHYLAXIS
     Dosage: UNK
     Route: 065
  13. ETANERCEPT [Suspect]
     Active Substance: ETANERCEPT
     Indication: GRAFT VERSUS HOST DISEASE
     Dosage: 50 MG, QW (FROM POST?OPERATIVE DAY 19)
     Route: 058
     Dates: start: 2016
  14. GANCICLOVIR. [Suspect]
     Active Substance: GANCICLOVIR
     Indication: ANTIVIRAL TREATMENT
  15. TACROLIMUS. [Suspect]
     Active Substance: TACROLIMUS
     Indication: IMMUNOSUPPRESSANT DRUG THERAPY
     Dosage: 0.075 MG/KG, QD
     Route: 065
     Dates: start: 201611
  16. GANCICLOVIR. [Suspect]
     Active Substance: GANCICLOVIR
     Indication: CYTOMEGALOVIRUS INFECTION
     Dosage: 5 MG/KG, QD
     Route: 065

REACTIONS (22)
  - Enterococcal infection [Fatal]
  - Cytomegalovirus infection [Fatal]
  - Drug ineffective [Fatal]
  - Enteritis [Unknown]
  - Multiple organ dysfunction syndrome [Fatal]
  - Pyrexia [Fatal]
  - Intestinal haemorrhage [Unknown]
  - Bone marrow disorder [Unknown]
  - Off label use [Unknown]
  - Aspergillus infection [Fatal]
  - Septic shock [Fatal]
  - Graft versus host disease in gastrointestinal tract [Fatal]
  - Systemic inflammatory response syndrome [Fatal]
  - Chimerism [Unknown]
  - Diarrhoea [Unknown]
  - Malnutrition [Unknown]
  - Haemoglobin decreased [Unknown]
  - Leukopenia [Recovering/Resolving]
  - Rash [Fatal]
  - Aplastic anaemia [Unknown]
  - Platelet count decreased [Unknown]
  - Graft versus host disease in skin [Fatal]

NARRATIVE: CASE EVENT DATE: 2016
